FAERS Safety Report 11461700 (Version 1)
Quarter: 2015Q3

REPORT INFORMATION
  Report Type: Spontaneous
  Country: US (occurrence: US)
  Receive Date: 20150831
  Receipt Date: 20150831
  Transmission Date: 20151125
  Serious: No
  Sender: FDA-Public Use
  Company Number: US-ELI_LILLY_AND_COMPANY-US201008004996

PATIENT
  Age: 28 Year
  Sex: Female

DRUGS (2)
  1. CYMBALTA [Suspect]
     Active Substance: DULOXETINE HYDROCHLORIDE
     Indication: DEPRESSION
     Dosage: 30 MG, UNK
  2. CYMBALTA [Suspect]
     Active Substance: DULOXETINE HYDROCHLORIDE
     Dosage: 60 MG, UNK

REACTIONS (15)
  - Anxiety [Unknown]
  - Vomiting [Recovered/Resolved]
  - Weight increased [Unknown]
  - Chills [Recovered/Resolved]
  - Feeling jittery [Unknown]
  - Hyperhidrosis [Recovered/Resolved]
  - Suicidal ideation [Recovered/Resolved]
  - Hyperventilation [Unknown]
  - Urticaria [Recovered/Resolved]
  - Mental disorder [Recovered/Resolved]
  - Panic attack [Unknown]
  - Nausea [Recovered/Resolved]
  - Withdrawal syndrome [Recovered/Resolved]
  - Bipolar disorder [Unknown]
  - Insomnia [Unknown]
